FAERS Safety Report 8616844-6 (Version None)
Quarter: 2012Q3

REPORT INFORMATION
  Report Type: 
  Country: None (occurrence: None)
  Receive Date: 20120823
  Receipt Date: 20120807
  Transmission Date: 20120928
  Serious: Yes (Hospitalization, Disabling)
  Sender: FDA-Public Use
  Company Number: US-009507513-1208USA003367

PATIENT

DRUGS (1)
  1. INVANZ [Suspect]
     Indication: CELLULITIS
     Dosage: 1 G, QD
     Dates: end: 20120806

REACTIONS (2)
  - HYPERSENSITIVITY [None]
  - RASH GENERALISED [None]
